FAERS Safety Report 15298578 (Version 1)
Quarter: 2018Q4

REPORT INFORMATION
  Report Type: Spontaneous
  Country: NL (occurrence: NL)
  Receive Date: 20180820
  Receipt Date: 20180820
  Transmission Date: 20190204
  Serious: Yes (Hospitalization)
  Sender: FDA-Public Use
  Company Number: NL-PURDUE PHARMA-GBR-2016-0037053

PATIENT
  Age: 27 Year
  Sex: Male
  Weight: 94 kg

DRUGS (9)
  1. VENLAFAXINE                        /01233802/ [Interacting]
     Active Substance: VENLAFAXINE HYDROCHLORIDE
     Indication: DEPRESSION
     Dosage: 75 MG, DAILY
     Route: 065
     Dates: start: 20160512, end: 20160526
  2. CIPROFLOXACINE                     /00697202/ [Concomitant]
     Dosage: 500 MG, BID
  3. PREGABALIN. [Concomitant]
     Active Substance: PREGABALIN
     Dosage: 150 MG, BID
  4. FENTANYL. [Concomitant]
     Active Substance: FENTANYL
     Dosage: 1 DF, Q3D
  5. MOVICOLON [Concomitant]
     Active Substance: POLYETHYLENE GLYCOL 3350\POTASSIUM CHLORIDE\SODIUM BICARBONATE\SODIUM CHLORIDE
     Dosage: 1 DF, DAILY
  6. OXAZEPAM. [Concomitant]
     Active Substance: OXAZEPAM
     Dosage: 10 MG, DAILY
  7. PANTOPRAZOL [Concomitant]
     Active Substance: PANTOPRAZOLE SODIUM
     Dosage: 40 MG, DAILY
  8. OXYCODONE HCL IR CAPSULE 20 MG [Suspect]
     Active Substance: OXYCODONE HYDROCHLORIDE
     Indication: BACK PAIN
     Dosage: 20 MG, TID
     Route: 065
     Dates: start: 2014, end: 20160526
  9. FRAXIPARINE                        /01437702/ [Concomitant]
     Active Substance: NADROPARIN CALCIUM
     Dosage: 3 ML, DAILY

REACTIONS (2)
  - Drug interaction [Recovering/Resolving]
  - Toxic leukoencephalopathy [Recovering/Resolving]

NARRATIVE: CASE EVENT DATE: 20160514
